FAERS Safety Report 25986922 (Version 1)
Quarter: 2025Q4

REPORT INFORMATION
  Report Type: Spontaneous
  Country: US (occurrence: US)
  Receive Date: 20251102
  Receipt Date: 20251102
  Transmission Date: 20260117
  Serious: No
  Sender: ELI LILLY AND COMPANY
  Company Number: US-ELI_LILLY_AND_COMPANY-US202510025642

PATIENT
  Age: 68 Year
  Sex: Female

DRUGS (3)
  1. EMGALITY [Suspect]
     Active Substance: GALCANEZUMAB-GNLM
     Indication: Facial pain
     Dosage: 100 MG, UNKNOWN
     Route: 058
     Dates: start: 20250710
  2. EMGALITY [Suspect]
     Active Substance: GALCANEZUMAB-GNLM
     Indication: Cluster headache
     Dosage: 100 MG, UNKNOWN
     Route: 058
     Dates: start: 20250809
  3. EMGALITY [Suspect]
     Active Substance: GALCANEZUMAB-GNLM
     Dosage: 100 MG, UNKNOWN
     Route: 058
     Dates: start: 20250911

REACTIONS (2)
  - Impaired healing [Not Recovered/Not Resolved]
  - Contusion [Unknown]
